FAERS Safety Report 16148312 (Version 2)
Quarter: 2019Q2

REPORT INFORMATION
  Report Type: Spontaneous
  Country: US (occurrence: US)
  Receive Date: 20190402
  Receipt Date: 20190424
  Transmission Date: 20190711
  Serious: No
  Sender: FDA-Public Use
  Company Number: US-IPSEN BIOPHARMACEUTICALS, INC.-2019-04875

PATIENT
  Sex: Male
  Weight: 28.12 kg

DRUGS (1)
  1. INCRELEX [Suspect]
     Active Substance: MECASERMIN
     Indication: PRIMARY INSULIN LIKE GROWTH FACTOR-1 DEFICIENCY
     Dosage: 4.3MG (0.43 ML)
     Route: 058
     Dates: start: 2012, end: 2019

REACTIONS (2)
  - Gastroenteritis viral [Unknown]
  - Malaise [Unknown]
